FAERS Safety Report 9530354 (Version 2)
Quarter: 2013Q3

REPORT INFORMATION
  Report Type: Report from Study
  Country: BR (occurrence: BR)
  Receive Date: 20130918
  Receipt Date: 20130918
  Transmission Date: 20140515
  Serious: Yes (Other)
  Sender: FDA-Public Use
  Company Number: BR-AMGEN-BRACT2011049886

PATIENT
  Age: 77 Year
  Sex: Male
  Weight: 89 kg

DRUGS (18)
  1. ETANERCEPT [Suspect]
     Indication: PSORIATIC ARTHROPATHY
     Dosage: UNK
     Route: 058
     Dates: start: 2003
  2. ETANERCEPT [Suspect]
     Dosage: 50 MG, UNK
     Route: 058
     Dates: start: 2006
  3. ETANERCEPT [Suspect]
     Dosage: UNK
     Route: 065
     Dates: start: 2011
  4. ETANERCEPT [Suspect]
     Dosage: 25 MG, 2 TIMES/WK
     Route: 058
     Dates: start: 2012
  5. OMEPRAZOLE [Concomitant]
     Dosage: UNK
  6. LOSARTAN [Concomitant]
     Dosage: UNK
  7. ARAVA [Concomitant]
     Indication: ARTHRITIS
     Dosage: 20 MG, 2X/WEEK
  8. LIPITOR [Concomitant]
     Dosage: UNK
  9. EUTHYROX [Concomitant]
     Dosage: UNK
  10. FRONTAL [Concomitant]
     Dosage: UNK
  11. METHOTREXATE [Concomitant]
     Dosage: UNK
  12. ENDOFOLIN [Concomitant]
     Dosage: UNK
  13. SOMALGIN [Concomitant]
     Dosage: UNK
  14. LANTUS [Concomitant]
     Indication: DIABETES MELLITUS
     Dosage: 60 IU, 1X/DAY
  15. LYRICA [Concomitant]
     Dosage: UNK
  16. GLIFAGE [Concomitant]
     Indication: DIABETES MELLITUS
     Dosage: 500 MG, QD
  17. CLOPIDOGREL [Concomitant]
     Dosage: UNK
  18. EFFIENT [Concomitant]
     Indication: BLOOD CHOLESTEROL INCREASED
     Dosage: 10 MG, 1X/DAY

REACTIONS (4)
  - Labyrinthitis [Unknown]
  - Cardiac disorder [Recovered/Resolved]
  - Peripheral vascular disorder [Unknown]
  - Hypoaesthesia [Not Recovered/Not Resolved]
